FAERS Safety Report 8187634-6 (Version None)
Quarter: 2012Q1

REPORT INFORMATION
  Report Type: 
  Country: None (occurrence: None)
  Receive Date: 20120306
  Receipt Date: 20120224
  Transmission Date: 20120608
  Serious: Yes (Hospitalization)
  Sender: FDA-Public Use
  Company Number: KR-BAXTER-2012BH005925

PATIENT
  Age: 21 Year
  Sex: Female
  Weight: 53 kg

DRUGS (8)
  1. PHYSIOSOL IN PLASTIC CONTAINER [Suspect]
     Indication: PERITONEAL DIALYSIS
     Route: 033
     Dates: start: 20120109, end: 20120224
  2. FEROBA [Concomitant]
     Indication: ANAEMIA
     Route: 048
     Dates: start: 20120106
  3. CALCIUM ACETATE [Concomitant]
     Indication: RENAL FAILURE CHRONIC
     Route: 048
     Dates: start: 20120106
  4. DIANEAL [Suspect]
     Indication: RENAL FAILURE CHRONIC
     Route: 033
     Dates: start: 20120224
  5. DIANEAL [Suspect]
     Indication: PERITONEAL DIALYSIS
     Route: 033
     Dates: start: 20120224
  6. EXTRANEAL [Suspect]
     Indication: RENAL FAILURE CHRONIC
     Route: 033
     Dates: start: 20120109, end: 20120224
  7. EXTRANEAL [Suspect]
     Indication: PERITONEAL DIALYSIS
     Route: 033
     Dates: start: 20120109, end: 20120224
  8. PHYSIOSOL IN PLASTIC CONTAINER [Suspect]
     Indication: RENAL FAILURE CHRONIC
     Route: 033
     Dates: start: 20120109, end: 20120224

REACTIONS (4)
  - VOMITING [None]
  - ULTRAFILTRATION FAILURE [None]
  - PULMONARY OEDEMA [None]
  - NAUSEA [None]
